FAERS Safety Report 8740863 (Version 3)
Quarter: 2013Q2

REPORT INFORMATION
  Report Type: Spontaneous
  Country: US (occurrence: US)
  Receive Date: 20120823
  Receipt Date: 20130516
  Transmission Date: 20140414
  Serious: No
  Sender: FDA-Public Use
  Company Number: US-009507513-1207USA011252

PATIENT
  Age: 15 Year
  Sex: Female
  Weight: 107.3 kg

DRUGS (2)
  1. NEXPLANON [Suspect]
     Indication: CONTRACEPTION
     Dosage: 1 DF, FOR 3 YEARS
     Dates: start: 20120724, end: 20120724
  2. NEXPLANON [Suspect]
     Dosage: UNK

REACTIONS (2)
  - Complication of device insertion [Unknown]
  - No adverse event [Unknown]
